FAERS Safety Report 21119737 (Version 2)
Quarter: 2022Q3

REPORT INFORMATION
  Report Type: Spontaneous
  Country: JP (occurrence: JP)
  Receive Date: 20220722
  Receipt Date: 20220823
  Transmission Date: 20221026
  Serious: Yes (Hospitalization)
  Sender: FDA-Public Use
  Company Number: JP-MYLANLABS-2022M1078661

PATIENT
  Age: 70 Year
  Sex: Female

DRUGS (5)
  1. ERYTHROCIN [Interacting]
     Active Substance: ERYTHROMYCIN LACTOBIONATE
     Indication: Bronchiectasis
     Dosage: 200 MILLIGRAM, QD
     Route: 048
  2. BEPRIDIL [Interacting]
     Active Substance: BEPRIDIL
     Indication: Mitral valve incompetence
     Route: 048
  3. BEPRIDIL [Interacting]
     Active Substance: BEPRIDIL
     Indication: Atrial fibrillation
  4. VERAPAMIL [Interacting]
     Active Substance: VERAPAMIL HYDROCHLORIDE
     Indication: Product used for unknown indication
     Route: 048
  5. EDOXABAN [Interacting]
     Active Substance: EDOXABAN
     Indication: Product used for unknown indication
     Route: 048

REACTIONS (4)
  - Ventricular fibrillation [Unknown]
  - Cardiac arrest [Unknown]
  - Drug interaction [Unknown]
  - Long QT syndrome [Unknown]
